FAERS Safety Report 7547263-1 (Version None)
Quarter: 2011Q2

REPORT INFORMATION
  Report Type: 
  Country: None (occurrence: None)
  Receive Date: 20110614
  Receipt Date: 20110601
  Transmission Date: 20111010
  Serious: Yes (Hospitalization)
  Sender: FDA-Public Use
  Company Number: KR-UCBSA-032518

PATIENT
  Sex: Male
  Weight: 62 kg

DRUGS (8)
  1. RAPICET [Concomitant]
     Indication: RHEUMATOID ARTHRITIS
     Route: 048
     Dates: start: 20100429
  2. ACECLOFENAC [Concomitant]
     Indication: RHEUMATOID ARTHRITIS
     Route: 048
     Dates: start: 20090225
  3. PRAVASTATIN SODIUM [Concomitant]
     Indication: HYPERLIPIDAEMIA
     Route: 048
     Dates: start: 20090720
  4. CERTOLIZUMAB PEGOL [Suspect]
     Indication: RHEUMATOID ARTHRITIS
     Route: 058
     Dates: start: 20110503, end: 20110525
  5. PANTOPRAZOLE [Concomitant]
     Indication: PROPHYLAXIS
     Route: 048
     Dates: start: 20100811
  6. FOLIC ACID [Concomitant]
     Indication: DRUG TOXICITY PROPHYLAXIS
     Route: 048
     Dates: start: 20090311
  7. PREDNISOLONE [Concomitant]
     Indication: RHEUMATOID ARTHRITIS
     Route: 048
     Dates: start: 20100811
  8. METHOTREXATE [Concomitant]
     Indication: RHEUMATOID ARTHRITIS
     Route: 048
     Dates: start: 20090311

REACTIONS (1)
  - PNEUMONIA [None]
